FAERS Safety Report 6239793-X (Version None)
Quarter: 2009Q2

REPORT INFORMATION
  Report Type: 
  Country: None (occurrence: None)
  Receive Date: 20090623
  Receipt Date: 20090617
  Transmission Date: 20091009
  Serious: Yes (Death)
  Sender: FDA-Public Use
  Company Number: AT-BRISTOL-MYERS SQUIBB COMPANY-14667950

PATIENT
  Age: 39 Year
  Sex: Male

DRUGS (7)
  1. CYCLOPHOSPHAMIDE [Suspect]
     Indication: HODGKIN'S DISEASE
  2. BLEOMYCIN SULFATE [Suspect]
     Indication: HODGKIN'S DISEASE
  3. ETOPOSIDE [Suspect]
     Indication: HODGKIN'S DISEASE
  4. VINCRISTINE SULFATE [Suspect]
     Indication: HODGKIN'S DISEASE
  5. DOXORUBICIN HCL [Suspect]
     Indication: HODGKIN'S DISEASE
  6. PROCARBAZINE [Suspect]
     Indication: HODGKIN'S DISEASE
  7. PREDNISOLONE [Suspect]
     Indication: HODGKIN'S DISEASE

REACTIONS (1)
  - SYSTEMIC MYCOSIS [None]
